FAERS Safety Report 5485849-9 (Version None)
Quarter: 2007Q4

REPORT INFORMATION
  Report Type: 
  Country: None (occurrence: None)
  Receive Date: 20071001
  Receipt Date: 20070725
  Transmission Date: 20080405
  Serious: Yes (Other)
  Sender: FDA-Public Use
  Company Number: TPA2007A01177

PATIENT
  Age: 61 Year
  Sex: Male

DRUGS (3)
  1. ACTOS [Suspect]
     Dosage: PER ORAL
     Route: 048
  2. BYETTA [Suspect]
     Indication: TYPE 2 DIABETES MELLITUS
     Dosage: 5 UG/KG, 2 IN 1 D, SUBCUTANEOUS;10 MCG, 2 IN 1 D, SUBCUTANEOUS
     Route: 058
  3. AMARYL [Concomitant]

REACTIONS (2)
  - CARDIAC FAILURE CONGESTIVE [None]
  - OEDEMA [None]
